FAERS Safety Report 18232954 (Version 11)
Quarter: 2021Q1

REPORT INFORMATION
  Report Type: Report from Study
  Country: CA (occurrence: CA)
  Receive Date: 20200904
  Receipt Date: 20210323
  Transmission Date: 20210419
  Serious: Yes (Other)
  Sender: FDA-Public Use
  Company Number: CA-BRISTOL-MYERS SQUIBB COMPANY-BMS-2020-070395

PATIENT
  Age: 69 Year
  Sex: Male
  Weight: 99 kg

DRUGS (2)
  1. ABATACEPT [Suspect]
     Active Substance: ABATACEPT
     Indication: PRODUCT USED FOR UNKNOWN INDICATION
     Dosage: 1000 MILLIGRAM, Q4WK
     Route: 042
  2. ABATACEPT [Suspect]
     Active Substance: ABATACEPT
     Dosage: 1000 MILLIGRAM, Q3WK
     Route: 042

REACTIONS (8)
  - Heart rate increased [Unknown]
  - Blood pressure systolic increased [Recovered/Resolved]
  - Loss of consciousness [Unknown]
  - Weight fluctuation [Unknown]
  - Off label use [Unknown]
  - Drug ineffective [Unknown]
  - Blood pressure diastolic abnormal [Unknown]
  - Blood pressure increased [Not Recovered/Not Resolved]

NARRATIVE: CASE EVENT DATE: 2020
